FAERS Safety Report 22606351 (Version 1)
Quarter: 2023Q2

REPORT INFORMATION
  Report Type: Spontaneous
  Country: JP (occurrence: JP)
  Receive Date: 20230615
  Receipt Date: 20230615
  Transmission Date: 20230722
  Serious: Yes (Other)
  Sender: FDA-Public Use
  Company Number: JP-ONO-2023JP015144

PATIENT

DRUGS (1)
  1. OPDIVO [Suspect]
     Active Substance: NIVOLUMAB
     Indication: Oesophageal carcinoma
     Dosage: 360 MG, Q3W
     Route: 041

REACTIONS (4)
  - Enterocolitis [Unknown]
  - Thyroid disorder [Unknown]
  - Platelet count decreased [Unknown]
  - Intentional product use issue [Unknown]
